FAERS Safety Report 4281753-2 (Version None)
Quarter: 2004Q1

REPORT INFORMATION
  Report Type: 
  Country: None (occurrence: None)
  Receive Date: 20040128
  Receipt Date: 20040113
  Transmission Date: 20041129
  Serious: Yes (Hospitalization)
  Sender: FDA-Public Use
  Company Number: 2003-06271

PATIENT
  Age: 31 Year
  Sex: Male
  Weight: 63 kg

DRUGS (3)
  1. TENOFOVIR DF [Suspect]
     Indication: HIV INFECTION
     Dosage: 300 MG QD PO
     Route: 048
     Dates: start: 20000915
  2. LAMIVUDINE [Suspect]
     Indication: HIV INFECTION
     Dosage: 150 BID PO
     Route: 048
     Dates: start: 20000915
  3. EFAVIRENZ [Suspect]
     Indication: HIV INFECTION
     Dosage: 600 QD PO
     Route: 048
     Dates: start: 20000915

REACTIONS (10)
  - BLOOD CALCIUM DECREASED [None]
  - CALCIUM DEFICIENCY [None]
  - GASTRITIS [None]
  - HYPOALBUMINAEMIA [None]
  - HYPOCHROMIC ANAEMIA [None]
  - IRON DEFICIENCY [None]
  - MALNUTRITION [None]
  - PROTEIN TOTAL DECREASED [None]
  - PYREXIA [None]
  - VITAMIN C DEFICIENCY [None]
